FAERS Safety Report 5750571-8 (Version None)
Quarter: 2008Q2

REPORT INFORMATION
  Report Type: 
  Country: None (occurrence: None)
  Receive Date: 20080528
  Receipt Date: 20080523
  Transmission Date: 20081010
  Serious: Yes (Disabling)
  Sender: FDA-Public Use
  Company Number: JP-BRISTOL-MYERS SQUIBB COMPANY-14205413

PATIENT
  Age: 4 Year
  Sex: Female

DRUGS (1)
  1. VEPESID [Suspect]
     Indication: ACUTE LYMPHOCYTIC LEUKAEMIA
     Dosage: INITIAL DOSE WAS 100MG/M2 1 PER 1 DAY, INTRAVENOUS DRIP, 09-MAY-2008 TO 09-MAY-2008.
     Route: 041
     Dates: start: 20080510, end: 20080511

REACTIONS (1)
  - RENAL FAILURE ACUTE [None]
